FAERS Safety Report 22951547 (Version 4)
Quarter: 2023Q4

REPORT INFORMATION
  Report Type: Report from Study
  Country: KR (occurrence: KR)
  Receive Date: 20230918
  Receipt Date: 20231006
  Transmission Date: 20240110
  Serious: Yes (Congenital Anomaly, Other)
  Sender: FDA-Public Use
  Company Number: KR-002147023-NVSC2023KR199291

PATIENT
  Age: 7 Month
  Sex: Female
  Weight: 8.7 kg

DRUGS (2)
  1. COSENTYX [Suspect]
     Active Substance: SECUKINUMAB
     Indication: Foetal exposure during pregnancy
     Dosage: 300 MG, QMO
     Route: 064
     Dates: start: 2020, end: 202203
  2. DICLECTIN [Suspect]
     Active Substance: DOXYLAMINE SUCCINATE\PYRIDOXINE HYDROCHLORIDE
     Indication: Foetal exposure during pregnancy
     Dosage: 1 DOSAGE FORM, BID (START DATE: 7 WEEKS OF PREGNANCY AND STOP DATE: 24 WEEKS OF PREGNANCY)
     Route: 064

REACTIONS (2)
  - Tethered oral tissue [Recovered/Resolved]
  - Foetal exposure during pregnancy [Unknown]

NARRATIVE: CASE EVENT DATE: 20230101
